FAERS Safety Report 5398225-4 (Version None)
Quarter: 2007Q3

REPORT INFORMATION
  Report Type: 
  Country: None (occurrence: None)
  Receive Date: 20070726
  Receipt Date: 20070719
  Transmission Date: 20080115
  Serious: Yes (Hospitalization)
  Sender: FDA-Public Use
  Company Number: TW-ROXANE LABORATORIES, INC-2007-BP-17825RO

PATIENT
  Age: 40 Year
  Sex: Female

DRUGS (4)
  1. AMLODIPINE [Suspect]
     Indication: HYPERTENSION
     Dosage: 30 MG X 1 DOSE
     Route: 048
  2. AMLODIPINE [Suspect]
     Dosage: 5 MG/DAY
     Route: 048
  3. GLIPIZIDE [Concomitant]
     Indication: DIABETES MELLITUS
     Route: 048
  4. RANITIDINE [Concomitant]
     Indication: DUODENAL ULCER
     Route: 048

REACTIONS (14)
  - ABDOMINAL TENDERNESS [None]
  - BRADYCARDIA [None]
  - CARDIAC OUTPUT DECREASED [None]
  - GASTROINTESTINAL SOUNDS ABNORMAL [None]
  - HYPOTENSION [None]
  - LOSS OF CONSCIOUSNESS [None]
  - MENTAL STATUS CHANGES [None]
  - NAUSEA [None]
  - NODAL RHYTHM [None]
  - OVERDOSE [None]
  - SUICIDE ATTEMPT [None]
  - TACHYCARDIA [None]
  - VENTRICULAR INTERNAL DIAMETER ABNORMAL [None]
  - VOMITING [None]
